FAERS Safety Report 4589881-9 (Version None)
Quarter: 2005Q1

REPORT INFORMATION
  Report Type: 
  Country: None (occurrence: None)
  Receive Date: 20050223
  Receipt Date: 20030826
  Transmission Date: 20050727
  Serious: Yes (Hospitalization, Disabling, Other)
  Sender: FDA-Public Use
  Company Number: US-MERCK-0308USA02595

PATIENT
  Age: 56 Year
  Sex: Male
  Weight: 101 kg

DRUGS (8)
  1. VIOXX [Suspect]
     Indication: ARTHRALGIA
     Route: 048
     Dates: start: 20010501, end: 20010722
  2. VIOXX [Suspect]
     Route: 048
     Dates: start: 20010723
  3. ADVIL [Concomitant]
     Indication: OSTEOARTHRITIS
     Route: 065
  4. ADVIL [Concomitant]
     Indication: HERPES ZOSTER
     Route: 065
  5. VICODIN [Concomitant]
     Indication: OSTEOARTHRITIS
     Route: 065
  6. ASPIRIN [Concomitant]
     Indication: OSTEOARTHRITIS
     Route: 065
  7. ULTRAM [Concomitant]
     Indication: OSTEOARTHRITIS
     Route: 065
     Dates: start: 20010501
  8. ULTRAM [Concomitant]
     Indication: PAIN
     Route: 065
     Dates: start: 20010501

REACTIONS (12)
  - ACUTE MYOCARDIAL INFARCTION [None]
  - CALCULUS URETERIC [None]
  - CALCULUS URINARY [None]
  - CORONARY ARTERY OCCLUSION [None]
  - DIVERTICULITIS [None]
  - IMPAIRED WORK ABILITY [None]
  - INJURY [None]
  - MITRAL VALVE INCOMPETENCE [None]
  - OSTEOARTHRITIS [None]
  - PNEUMONIA INFLUENZAL [None]
  - PULMONARY ARTERIAL PRESSURE INCREASED [None]
  - TRICUSPID VALVE INCOMPETENCE [None]
